FAERS Safety Report 8472020-1 (Version None)
Quarter: 2012Q2

REPORT INFORMATION
  Report Type: 
  Country: None (occurrence: None)
  Receive Date: 20120627
  Receipt Date: 20120622
  Transmission Date: 20120825
  Serious: Yes (Hospitalization)
  Sender: FDA-Public Use
  Company Number: JP-JNJFOC-20120612367

PATIENT
  Sex: Male
  Weight: 46 kg

DRUGS (8)
  1. DIOVAN HCT [Concomitant]
     Route: 048
  2. STELARA [Suspect]
     Route: 058
     Dates: start: 20120518
  3. STELARA [Suspect]
     Route: 058
     Dates: start: 20111111
  4. STELARA [Suspect]
     Route: 058
     Dates: start: 20120420
  5. RABEPRAZOLE SODIUM [Concomitant]
     Route: 048
  6. OLOPATADINE HCL [Concomitant]
     Indication: PSORIATIC ARTHROPATHY
     Route: 048
  7. NORVASC [Concomitant]
     Route: 048
  8. STELARA [Suspect]
     Indication: PSORIATIC ARTHROPATHY
     Route: 058
     Dates: start: 20111209

REACTIONS (1)
  - STAPHYLOCOCCAL SEPSIS [None]
